FAERS Safety Report 4635901-2 (Version None)
Quarter: 2005Q2

REPORT INFORMATION
  Report Type: 
  Country: None (occurrence: None)
  Receive Date: 20050415
  Receipt Date: 20050404
  Transmission Date: 20051028
  Serious: Yes (Death, Hospitalization)
  Sender: FDA-Public Use
  Company Number: FR-BRISTOL-MYERS SQUIBB COMPANY-12927059

PATIENT
  Age: 86 Year
  Sex: Male

DRUGS (6)
  1. GLUCOPHAGE [Suspect]
     Route: 048
     Dates: end: 20041222
  2. ANDROCUR [Suspect]
     Route: 048
     Dates: end: 20041224
  3. FUROSEMIDE [Suspect]
     Route: 048
     Dates: end: 20041227
  4. KALEORID [Suspect]
     Route: 048
     Dates: end: 20041227
  5. QUINAPRIL HCL [Suspect]
     Route: 048
     Dates: end: 20041229
  6. KARDEGIC [Suspect]
     Route: 048
     Dates: end: 20041231

REACTIONS (2)
  - HEPATITIS [None]
  - HEPATOCELLULAR DAMAGE [None]
